FAERS Safety Report 8776090 (Version 2)
Quarter: 2012Q4

REPORT INFORMATION
  Report Type: 
  Country: BR (occurrence: BR)
  Receive Date: 20120910
  Receipt Date: 20120924
  Transmission Date: 20130627
  Serious: Yes (Other)
  Sender: FDA-Public Use
  Company Number: BR-ABBOTT-12P-020-0976928-00

PATIENT
  Age: 32 Year
  Sex: Female

DRUGS (1)
  1. VALPAKINE [Suspect]
     Indication: CYST
     Route: 048
     Dates: start: 2006

REACTIONS (1)
  - Forceps delivery [Unknown]
